FAERS Safety Report 4866992-1 (Version None)
Quarter: 2005Q4

REPORT INFORMATION
  Report Type: 
  Country: None (occurrence: None)
  Receive Date: 20051227
  Receipt Date: 20050914
  Transmission Date: 20060501
  Serious: Yes (Hospitalization)
  Sender: FDA-Public Use
  Company Number: US-MERCK-0509USA02112

PATIENT
  Age: 57 Year
  Sex: Female
  Weight: 57 kg

DRUGS (32)
  1. VIOXX [Suspect]
     Indication: OSTEOARTHRITIS
     Route: 048
     Dates: start: 20000201, end: 20040330
  2. ULTRAM [Concomitant]
     Indication: PAIN
     Route: 065
  3. PREMARIN [Concomitant]
     Indication: HYSTERECTOMY
     Route: 065
     Dates: start: 19780101
  4. PROZAC [Concomitant]
     Indication: DEPRESSION
     Route: 065
     Dates: start: 19990101, end: 20001031
  5. KLONOPIN [Concomitant]
     Indication: DEPRESSION
     Route: 065
     Dates: start: 19990101
  6. SOMA [Concomitant]
     Indication: PAIN
     Route: 065
     Dates: start: 19980101
  7. EFFEXOR [Concomitant]
     Indication: PAIN
     Route: 065
     Dates: start: 20001211
  8. CEPHALEXIN [Concomitant]
     Route: 065
  9. PROTUSS [Concomitant]
     Route: 065
  10. FLONASE [Concomitant]
     Route: 065
  11. HYDROCHLOROTHIAZIDE [Concomitant]
     Indication: HYPERTENSION
     Route: 065
     Dates: start: 20030205, end: 20031018
  12. NITROGLYCERIN [Concomitant]
     Indication: CARDIAC DISORDER
     Route: 065
  13. TRAZODONE HYDROCHLORIDE [Concomitant]
     Route: 065
  14. DOXEPIN HYDROCHLORIDE [Concomitant]
     Route: 065
  15. ZYRTEC [Concomitant]
     Route: 065
  16. ESTRATEST [Concomitant]
     Route: 065
  17. TEQUIN [Concomitant]
     Route: 065
  18. MERIDIA [Concomitant]
     Route: 065
     Dates: start: 20011021, end: 20020202
  19. PATANOL [Concomitant]
     Route: 065
  20. ELOCON [Concomitant]
     Route: 065
  21. LEVAQUIN [Concomitant]
     Route: 065
  22. ALLEGRA [Concomitant]
     Route: 065
  23. ALTACE [Concomitant]
     Indication: HYPERTENSION
     Route: 065
     Dates: start: 20020819, end: 20031121
  24. ASTELIN [Concomitant]
     Route: 065
  25. LIPITOR [Concomitant]
     Indication: LOW DENSITY LIPOPROTEIN INCREASED
     Route: 065
     Dates: start: 20021212
  26. OCUFLOX [Concomitant]
     Route: 065
  27. QUIXIN [Concomitant]
     Route: 065
  28. ZITHROMAX [Concomitant]
     Route: 065
  29. DIOVAN [Concomitant]
     Indication: HYPERTENSION
     Route: 065
     Dates: start: 20031205, end: 20040101
  30. GUAIFENEX [Concomitant]
     Route: 065
  31. ASPIRIN [Concomitant]
     Indication: MYOCARDIAL INFARCTION
     Route: 065
  32. TOPROL-XL [Concomitant]
     Indication: HYPERTENSION
     Route: 065
     Dates: start: 20020819, end: 20020821

REACTIONS (14)
  - ANGINA PECTORIS [None]
  - ARTERIOSCLEROSIS CORONARY ARTERY [None]
  - BACK PAIN [None]
  - BLOOD CHOLESTEROL INCREASED [None]
  - CHEST PAIN [None]
  - DEPRESSION [None]
  - GASTRIC DISORDER [None]
  - HYPERSENSITIVITY [None]
  - LOW DENSITY LIPOPROTEIN INCREASED [None]
  - MALIGNANT HYPERTENSION [None]
  - MYOCARDIAL INFARCTION [None]
  - PAIN [None]
  - SKIN DISORDER [None]
  - TRANSIENT ISCHAEMIC ATTACK [None]
